FAERS Safety Report 6218774-6 (Version None)
Quarter: 2009Q2

REPORT INFORMATION
  Report Type: 
  Country: None (occurrence: None)
  Receive Date: 20090608
  Receipt Date: 20090525
  Transmission Date: 20091009
  Serious: Yes (Other)
  Sender: FDA-Public Use
  Company Number: SE-ELI_LILLY_AND_COMPANY-SE200905005925

PATIENT
  Age: 38 Year
  Sex: Female

DRUGS (2)
  1. ZYPREXA [Suspect]
     Dosage: UNK, UNK
     Dates: start: 20011201
  2. ZYPREXA [Suspect]
     Dosage: 7.5 MG, DAILY (1/D)
     Route: 048
     Dates: end: 20030901

REACTIONS (1)
  - CONGESTIVE CARDIOMYOPATHY [None]
